FAERS Safety Report 6310704-1 (Version None)
Quarter: 2009Q3

REPORT INFORMATION
  Report Type: 
  Country: None (occurrence: None)
  Receive Date: 20090814
  Receipt Date: 20090811
  Transmission Date: 20100115
  Serious: Yes (Disabling)
  Sender: FDA-Public Use
  Company Number: JP-MERCK-0906USA01657

PATIENT
  Age: 74 Year
  Sex: Female
  Weight: 63 kg

DRUGS (12)
  1. PEPCID [Suspect]
     Indication: GASTRODUODENAL ULCER
     Route: 048
     Dates: end: 20080301
  2. GASCON [Suspect]
     Indication: INTESTINAL RESECTION
     Route: 048
     Dates: end: 20080301
  3. GASMOTIN [Suspect]
     Indication: INTESTINAL RESECTION
     Route: 048
     Dates: end: 20080301
  4. CYANOCOBALAMIN [Concomitant]
     Route: 065
  5. ALINAMIN F (FURSULTIAMINE HYDROCHLORIDE) [Concomitant]
     Route: 065
  6. SIGMART [Concomitant]
     Route: 065
  7. HERBS (UNSPECIFIED) [Concomitant]
     Route: 065
  8. NU-LOTAN [Concomitant]
     Route: 065
  9. FRANDOL [Concomitant]
     Route: 065
  10. SEPAZON [Concomitant]
     Route: 065
  11. EVISTA [Concomitant]
     Route: 065
  12. ROCALTROL [Concomitant]
     Route: 065

REACTIONS (1)
  - PARKINSONISM [None]
